FAERS Safety Report 6610881-9 (Version None)
Quarter: 2010Q1

REPORT INFORMATION
  Report Type: 
  Country: None (occurrence: None)
  Receive Date: 20100219
  Receipt Date: 20100210
  Transmission Date: 20100710
  Serious: Yes (Hospitalization)
  Sender: FDA-Public Use
  Company Number: 230245J10BRA

PATIENT
  Age: 32 Year
  Sex: Female

DRUGS (5)
  1. REBIF [Suspect]
     Indication: RELAPSING-REMITTING MULTIPLE SCLEROSIS
     Dosage: 22 MCG, 3 IN 1 WEEKS, 44 MCG, 3 IN 1 WEEKS
     Dates: start: 20090901, end: 20091101
  2. REBIF [Suspect]
     Indication: RELAPSING-REMITTING MULTIPLE SCLEROSIS
     Dosage: 22 MCG, 3 IN 1 WEEKS, 44 MCG, 3 IN 1 WEEKS
     Dates: start: 20091101
  3. DALSY (IBUPROFEN) [Concomitant]
  4. RIVOTRIL (CLONAZEPAM) [Concomitant]
  5. SERTRALINE HCL [Concomitant]

REACTIONS (8)
  - CHILLS [None]
  - CRYING [None]
  - DRY MOUTH [None]
  - HEADACHE [None]
  - MOVEMENT DISORDER [None]
  - NAUSEA [None]
  - PAIN [None]
  - SPEECH DISORDER [None]
